FAERS Safety Report 4347456-0 (Version None)
Quarter: 2004Q2

REPORT INFORMATION
  Report Type: 
  Country: None (occurrence: None)
  Receive Date: 20040421
  Receipt Date: 20040324
  Transmission Date: 20050107
  Serious: Yes (Other)
  Sender: FDA-Public Use
  Company Number: 2004021351

PATIENT
  Sex: Female

DRUGS (2)
  1. RELPAX [Suspect]
     Indication: MIGRAINE WITH AURA
     Dosage: 40 MG (ONCE), ORAL
     Route: 048
     Dates: start: 20040301, end: 20040301
  2. ALLERGY MEDICATION (ALLERGY MEDICATION) [Concomitant]

REACTIONS (5)
  - BLOOD PRESSURE IMMEASURABLE [None]
  - CARDIAC FLUTTER [None]
  - DIZZINESS [None]
  - FEELING HOT [None]
  - SYNCOPE [None]
